FAERS Safety Report 23768339 (Version 1)
Quarter: 2024Q2

REPORT INFORMATION
  Report Type: Spontaneous
  Country: US (occurrence: US)
  Receive Date: 20240422
  Receipt Date: 20240422
  Transmission Date: 20240716
  Serious: No
  Sender: FDA-Public Use
  Company Number: US-MELINTA THERAPEUTICS, LLC-US-MLNT-23-00473

PATIENT
  Sex: Female

DRUGS (1)
  1. TOPROL XL [Suspect]
     Active Substance: METOPROLOL SUCCINATE
     Indication: Blood pressure abnormal
     Dosage: 50 MILLIGRAM
     Route: 048

REACTIONS (5)
  - Foot operation [Unknown]
  - Joint injury [Recovered/Resolved]
  - Hypertension [Unknown]
  - Stress [Unknown]
  - Product availability issue [Unknown]
